FAERS Safety Report 10706197 (Version 1)
Quarter: 2015Q1

REPORT INFORMATION
  Report Type: Spontaneous
  Country: FR (occurrence: FR)
  Receive Date: 20150113
  Receipt Date: 20150113
  Transmission Date: 20150721
  Serious: Yes (Hospitalization)
  Sender: FDA-Public Use
  Company Number: FR-ASTRAZENECA-2015SE01079

PATIENT
  Age: 68 Year
  Sex: Female

DRUGS (10)
  1. COLCHIMAX [Suspect]
     Active Substance: COLCHICINE\DICYCLOMINE HYDROCHLORIDE
     Indication: ARTHRALGIA
     Route: 065
     Dates: start: 20141105, end: 20141107
  2. KARDEGIC [Concomitant]
     Active Substance: ASPIRIN LYSINE
  3. INEXIUM [Suspect]
     Active Substance: ESOMEPRAZOLE
     Route: 048
     Dates: start: 20141021, end: 20141107
  4. BISOPROLOL [Concomitant]
     Active Substance: BISOPROLOL
  5. FUROSEMIDE. [Concomitant]
     Active Substance: FUROSEMIDE
  6. LEVOTHYROX [Concomitant]
     Active Substance: LEVOTHYROXINE
  7. ZOPICLONE [Concomitant]
     Active Substance: ZOPICLONE
     Dosage: 0.5 DF IF NEEDED
  8. IXPRIM [Suspect]
     Active Substance: ACETAMINOPHEN\TRAMADOL HYDROCHLORIDE
     Route: 065
     Dates: start: 20141023, end: 20141107
  9. FRAGMINE [Concomitant]
     Active Substance: DALTEPARIN SODIUM
     Dates: start: 20141021
  10. DIFFU K [Concomitant]
     Active Substance: POTASSIUM CHLORIDE
     Dates: start: 20141023

REACTIONS (3)
  - Confusional state [Recovered/Resolved]
  - Hallucination [Recovered/Resolved]
  - Dry mouth [Recovered/Resolved]

NARRATIVE: CASE EVENT DATE: 20141107
